FAERS Safety Report 19012504 (Version 1)
Quarter: 2021Q1

REPORT INFORMATION
  Report Type: Report from Study
  Country: FR (occurrence: FR)
  Receive Date: 20210316
  Receipt Date: 20210316
  Transmission Date: 20210420
  Serious: Yes (Hospitalization)
  Sender: FDA-Public Use
  Company Number: NVSC2021FR007351

PATIENT
  Age: 61 Year
  Sex: Female
  Weight: 42 kg

DRUGS (5)
  1. RIBOCICLIB. [Suspect]
     Active Substance: RIBOCICLIB
     Indication: METASTATIC NEOPLASM
     Dosage: 200 MG, QD, 2 WEEKS ON /1 WEEK OFF
     Route: 048
     Dates: start: 20201224, end: 20210106
  2. ZARZIO [Concomitant]
     Active Substance: FILGRASTIM
     Indication: AUTOIMMUNE NEUTROPENIA
     Dosage: 1 ADMINISTRATION PER WEEK
     Route: 042
     Dates: start: 20201222
  3. HDM201 [Suspect]
     Active Substance: SIREMADLIN
     Indication: METASTATIC NEOPLASM
     Dosage: 120 MG, Q3W
     Route: 048
     Dates: start: 20201224, end: 20201224
  4. OXYCONTIN [Concomitant]
     Active Substance: OXYCODONE HYDROCHLORIDE
     Indication: PAIN
     Dosage: 30 MG, BID
     Route: 048
     Dates: start: 20201221
  5. OXYNORMORO [Concomitant]
     Active Substance: OXYCODONE HYDROCHLORIDE
     Indication: PAIN
     Dosage: 10 MG
     Route: 048
     Dates: start: 20201221

REACTIONS (1)
  - Pancytopenia [Recovered/Resolved]

NARRATIVE: CASE EVENT DATE: 20210107
